FAERS Safety Report 4652593-7 (Version None)
Quarter: 2005Q2

REPORT INFORMATION
  Report Type: 
  Country: None (occurrence: None)
  Receive Date: 20050504
  Receipt Date: 20050428
  Transmission Date: 20051028
  Serious: Yes (Hospitalization)
  Sender: FDA-Public Use
  Company Number: US-JNJFOC-20050500058

PATIENT
  Age: 33 Year
  Sex: Male

DRUGS (2)
  1. RISPERDAL [Suspect]
     Route: 049
  2. RISPERDAL CONSTA [Suspect]
     Route: 030

REACTIONS (3)
  - AGGRESSION [None]
  - DELUSION [None]
  - MUSCULOSKELETAL STIFFNESS [None]
